FAERS Safety Report 5137508-X (Version None)
Quarter: 2006Q4

REPORT INFORMATION
  Report Type: 
  Country: None (occurrence: None)
  Receive Date: 20061030
  Receipt Date: 20051114
  Transmission Date: 20070319
  Serious: No
  Sender: FDA-Public Use
  Company Number: US-GLAXOSMITHKLINE-A0582165A

PATIENT
  Age: 75 Year
  Sex: Female

DRUGS (7)
  1. ADVAIR HFA [Suspect]
     Indication: ASTHMA
     Dosage: 1PUFF TWICE PER DAY
     Route: 055
     Dates: start: 20040201
  2. DIAVAN [Concomitant]
  3. ASPIRIN [Concomitant]
  4. VITAMIN [Concomitant]
  5. COREG [Concomitant]
  6. ARIMIDEX [Concomitant]
  7. LORAZEPAM [Concomitant]

REACTIONS (2)
  - OVERDOSE [None]
  - PHARMACEUTICAL PRODUCT COMPLAINT [None]
